FAERS Safety Report 8132852-6 (Version None)
Quarter: 2012Q1

REPORT INFORMATION
  Report Type: 
  Country: None (occurrence: None)
  Receive Date: 20120213
  Receipt Date: 20120206
  Transmission Date: 20120608
  Serious: Yes (Hospitalization)
  Sender: FDA-Public Use
  Company Number: FI-BAYER-2012-008505

PATIENT
  Age: 21 Year
  Sex: Female

DRUGS (1)
  1. YASMIN [Suspect]
     Indication: CONTRACEPTION
     Dosage: UNK
     Route: 048
     Dates: start: 20061001, end: 20111201

REACTIONS (4)
  - PREGNANCY ON ORAL CONTRACEPTIVE [None]
  - PYREXIA [None]
  - UTERINE INFECTION [None]
  - VAGINAL HAEMORRHAGE [None]
